FAERS Safety Report 5151266-4 (Version None)
Quarter: 2006Q4

REPORT INFORMATION
  Report Type: 
  Country: None (occurrence: None)
  Receive Date: 20061114
  Receipt Date: 20061114
  Transmission Date: 20070319
  Serious: Yes (Other)
  Sender: FDA-Public Use
  Company Number: None

PATIENT
  Sex: Female
  Weight: 72.5755 kg

DRUGS (1)
  1. EQUATE EXTRA STRENGTH PAIN    500MG    PERRIGO [Suspect]
     Indication: HEADACHE
     Dosage: 500MG  AS NEEDED   PO
     Route: 048
     Dates: start: 20030601, end: 20061108

REACTIONS (4)
  - ABDOMINAL PAIN [None]
  - CONSTIPATION [None]
  - ILEUS [None]
  - MIDDLE INSOMNIA [None]
